FAERS Safety Report 5456504-6 (Version None)
Quarter: 2007Q3

REPORT INFORMATION
  Report Type: 
  Country: None (occurrence: None)
  Receive Date: 20070918
  Receipt Date: 20070330
  Transmission Date: 20080115
  Serious: Yes (Other)
  Sender: FDA-Public Use
  Company Number: US-ASTRAZENECA-2006UW25136

PATIENT
  Age: 39 Year
  Sex: Male
  Weight: 74 kg

DRUGS (8)
  1. SEROQUEL [Suspect]
     Indication: BIPOLAR DISORDER
     Route: 048
     Dates: start: 19970101
  2. ABILIFY [Concomitant]
  3. CLOZARIL [Concomitant]
  4. GEODON [Concomitant]
  5. HALDOL [Concomitant]
     Dates: start: 19860101, end: 19990101
  6. NAVANE [Concomitant]
  7. RISPERDAL [Concomitant]
  8. ZYPREXA [Concomitant]

REACTIONS (1)
  - TARDIVE DYSKINESIA [None]
